FAERS Safety Report 14406857 (Version 2)
Quarter: 2018Q3

REPORT INFORMATION
  Report Type: Spontaneous
  Country: US (occurrence: US)
  Receive Date: 20180118
  Receipt Date: 20180807
  Transmission Date: 20181010
  Serious: Yes (Hospitalization, Other)
  Sender: FDA-Public Use
  Company Number: US-DSJP-DSU-2017-143022

PATIENT

DRUGS (3)
  1. BENICAR [Suspect]
     Active Substance: OLMESARTAN MEDOXOMIL
     Indication: BLOOD PRESSURE ABNORMAL
     Dosage: 20 MG, UNK
     Route: 048
     Dates: start: 20040326
  2. BENICAR [Suspect]
     Active Substance: OLMESARTAN MEDOXOMIL
     Dosage: 40 MG, UNK
     Route: 048
     Dates: start: 20040326
  3. BENICAR HCT [Suspect]
     Active Substance: HYDROCHLOROTHIAZIDE\OLMESARTAN MEDOXOMIL
     Indication: PRODUCT USED FOR UNKNOWN INDICATION
     Dosage: 40?25 MG, QD
     Route: 048
     Dates: start: 20040326

REACTIONS (10)
  - Cardiac failure congestive [Recovered/Resolved]
  - Acute kidney injury [Unknown]
  - Oedema [Recovered/Resolved]
  - Gastrointestinal haemorrhage [Unknown]
  - Irritable bowel syndrome [Recovered/Resolved]
  - Gastroenteritis [Recovering/Resolving]
  - Gastric ulcer [Unknown]
  - Chronic kidney disease [Unknown]
  - Gastritis [Recovered/Resolved]
  - Diverticulum [Unknown]

NARRATIVE: CASE EVENT DATE: 20040326
